FAERS Safety Report 4281590-9 (Version None)
Quarter: 2004Q1

REPORT INFORMATION
  Report Type: 
  Country: None (occurrence: None)
  Receive Date: 20040128
  Receipt Date: 20040120
  Transmission Date: 20041129
  Serious: Yes (Death)
  Sender: FDA-Public Use
  Company Number: 2004195649GB

PATIENT
  Age: 75 Year
  Sex: Female

DRUGS (2)
  1. CELEBREX [Suspect]
     Indication: BACK PAIN
     Dosage: 100 MG, BID, ORAL
     Route: 048
     Dates: start: 20031019, end: 20031111
  2. IBUPROFEN [Concomitant]

REACTIONS (2)
  - CIRCULATORY COLLAPSE [None]
  - DUODENAL ULCER PERFORATION [None]
